FAERS Safety Report 12358634 (Version 1)
Quarter: 2016Q2

REPORT INFORMATION
  Report Type: Spontaneous
  Country: US (occurrence: US)
  Receive Date: 20160512
  Receipt Date: 20160512
  Transmission Date: 20160815
  Serious: No
  Sender: FDA-Public Use
  Company Number: US-BAYER-2016-091210

PATIENT
  Age: 65 Year
  Sex: Male
  Weight: 82.99 kg

DRUGS (12)
  1. CILOSTAZOL. [Concomitant]
     Active Substance: CILOSTAZOL
  2. QUETIAPINE. [Concomitant]
     Active Substance: QUETIAPINE
  3. CALCIUM WITH VITAMIN D [Concomitant]
     Active Substance: CALCIUM\VITAMIN D
  4. EQUATE [Concomitant]
     Active Substance: UNSPECIFIED INGREDIENT
  5. ALEVE [Suspect]
     Active Substance: NAPROXEN SODIUM
     Indication: ARTHRALGIA
     Dosage: UNK
     Route: 048
     Dates: start: 2008
  6. NAMENDA [Concomitant]
     Active Substance: MEMANTINE HYDROCHLORIDE
  7. ARICEPT [Concomitant]
     Active Substance: DONEPEZIL HYDROCHLORIDE
  8. LISINOPRIL. [Concomitant]
     Active Substance: LISINOPRIL
  9. POTASSIUM [Concomitant]
     Active Substance: POTASSIUM
  10. BAYER LOW DOSE [Concomitant]
     Active Substance: ASPIRIN
  11. RANITIDINE. [Concomitant]
     Active Substance: RANITIDINE
  12. CRESTOR [Concomitant]
     Active Substance: ROSUVASTATIN CALCIUM

REACTIONS (1)
  - Product use issue [None]

NARRATIVE: CASE EVENT DATE: 2008
